FAERS Safety Report 8283067-2 (Version None)
Quarter: 2012Q1

REPORT INFORMATION
  Report Type: 
  Country: None (occurrence: None)
  Receive Date: 20120327
  Receipt Date: 20120314
  Transmission Date: 20120608
  Serious: Yes (Other)
  Sender: FDA-Public Use
  Company Number: US-145289

PATIENT
  Sex: Male
  Weight: 68.2 kg

DRUGS (3)
  1. WINRHO SDF [Suspect]
     Indication: AUTOIMMUNE THROMBOCYTOPENIA
     Dosage: 51.17 ?G/KG TOTAL INTRAVENOUS (NOT OTHERWISE SPECIFIED), (INTRAVENOUS (NOT OTHERWISE SPECIFIED))
     Route: 042
     Dates: start: 20120307, end: 20120307
  2. WINRHO SDF [Suspect]
     Indication: AUTOIMMUNE THROMBOCYTOPENIA
     Dosage: 51.17 ?G/KG TOTAL INTRAVENOUS (NOT OTHERWISE SPECIFIED), (INTRAVENOUS (NOT OTHERWISE SPECIFIED))
     Route: 042
     Dates: start: 20120307, end: 20120307
  3. WINRHO SDF [Suspect]

REACTIONS (3)
  - HAEMOGLOBIN DECREASED [None]
  - DRUG DISPENSING ERROR [None]
  - HAEMOLYSIS [None]
